FAERS Safety Report 13026240 (Version 1)
Quarter: 2016Q4

REPORT INFORMATION
  Report Type: Spontaneous
  Country: US (occurrence: US)
  Receive Date: 20161214
  Receipt Date: 20161214
  Transmission Date: 20170207
  Serious: No
  Sender: FDA-Public Use
  Company Number: None

PATIENT
  Age: 89 Year
  Sex: Female
  Weight: 46.76 kg

DRUGS (12)
  1. CIPROFLOXACIN HCL 500MG TAB [Suspect]
     Active Substance: CIPROFLOXACIN
     Indication: PRODUCT USED FOR UNKNOWN INDICATION
     Dosage: 1 PILL A DAY, MOUTH
     Route: 048
     Dates: start: 20110606, end: 20161025
  2. CIPRO [Concomitant]
     Active Substance: CIPROFLOXACIN HYDROCHLORIDE
  3. VITAMIN D [Concomitant]
     Active Substance: CHOLECALCIFEROL
  4. BIOTIN [Concomitant]
     Active Substance: BIOTIN
  5. CIPROFLOXACIN HCL 500MG TAB [Suspect]
     Active Substance: CIPROFLOXACIN
     Indication: SERRATIA INFECTION
     Dosage: 1 PILL A DAY, MOUTH
     Route: 048
     Dates: start: 20110606, end: 20161025
  6. AMALODPHINE [Concomitant]
  7. OSCAL [Concomitant]
     Active Substance: CALCIUM CARBONATE
  8. CITRAZEL [Concomitant]
  9. GASX [Concomitant]
  10. PANTPRAZOLE [Concomitant]
  11. MIRALAX [Concomitant]
     Active Substance: POLYETHYLENE GLYCOL 3350
  12. CHEWY GUMMIES [Concomitant]

REACTIONS (2)
  - Muscle spasms [None]
  - Joint crepitation [None]

NARRATIVE: CASE EVENT DATE: 20161025
